FAERS Safety Report 25867990 (Version 1)
Quarter: 2025Q4

REPORT INFORMATION
  Report Type: Spontaneous
  Country: EU (occurrence: EU)
  Receive Date: 20251001
  Receipt Date: 20251001
  Transmission Date: 20260117
  Serious: Yes (Disabling)
  Sender: ACCORD
  Company Number: None

PATIENT
  Age: 78 Year
  Sex: Female

DRUGS (1)
  1. ZOLEDRONIC ACID [Suspect]
     Active Substance: ZOLEDRONIC ACID
     Indication: Osteoporosis
     Dates: start: 20250616

REACTIONS (6)
  - Conjunctival oedema [Unknown]
  - Orbital infection [Recovering/Resolving]
  - Corneal oedema [Recovering/Resolving]
  - Vision blurred [Unknown]
  - Ulcerative keratitis [Recovering/Resolving]
  - Iridocyclitis [Recovering/Resolving]

NARRATIVE: CASE EVENT DATE: 20250618
